FAERS Safety Report 8221352-0 (Version None)
Quarter: 2012Q1

REPORT INFORMATION
  Report Type: 
  Country: None (occurrence: None)
  Receive Date: 20120320
  Receipt Date: 20120315
  Transmission Date: 20120608
  Serious: Yes (Other)
  Sender: FDA-Public Use
  Company Number: PHHY2010CA23406

PATIENT
  Sex: Male

DRUGS (1)
  1. ZOMETA [Suspect]
     Indication: PROSTATE CANCER
     Dosage: 4 MG EVERY 12 WEEKS
     Route: 042
     Dates: start: 20091030

REACTIONS (9)
  - MEAN CELL HAEMOGLOBIN CONCENTRATION DECREASED [None]
  - BLOOD PRESSURE INCREASED [None]
  - MOBILITY DECREASED [None]
  - HAEMOGLOBIN DECREASED [None]
  - HAEMATOCRIT DECREASED [None]
  - CATARACT [None]
  - BLOOD POTASSIUM DECREASED [None]
  - BONE PAIN [None]
  - ARTHRALGIA [None]
